FAERS Safety Report 20381852 (Version 1)
Quarter: 2022Q1

REPORT INFORMATION
  Report Type: Spontaneous
  Country: CA (occurrence: CA)
  Receive Date: 20220127
  Receipt Date: 20220127
  Transmission Date: 20220423
  Serious: Yes (Other)
  Sender: FDA-Public Use
  Company Number: CA-BIOGEN-2022BI01088768

PATIENT
  Age: 39 Year
  Sex: Female

DRUGS (5)
  1. TECFIDERA [Suspect]
     Active Substance: DIMETHYL FUMARATE
     Indication: Secondary progressive multiple sclerosis
     Dosage: DOSAGE FORM : NOT SPECIFIED. THERAPY DURATION 584. 0 DAYS
     Route: 048
  2. COPAXONE [Suspect]
     Active Substance: GLATIRAMER ACETATE
     Indication: Secondary progressive multiple sclerosis
     Route: 048
  3. GILENYA [Suspect]
     Active Substance: FINGOLIMOD HYDROCHLORIDE
     Indication: Secondary progressive multiple sclerosis
     Dosage: THERAPY DURATION: 10 MONTHS
     Route: 048
  4. GILENYA [Suspect]
     Active Substance: FINGOLIMOD HYDROCHLORIDE
     Dosage: THERAPY DURATION: 814 DAYS
     Route: 048
  5. GILENYA [Suspect]
     Active Substance: FINGOLIMOD HYDROCHLORIDE
     Dosage: THERAPY DURATION: 298 DAYS
     Route: 048

REACTIONS (6)
  - Alopecia [Unknown]
  - Cognitive disorder [Unknown]
  - Drug ineffective [Unknown]
  - Expanded disability status scale score increased [Unknown]
  - Lymphatic disorder [Unknown]
  - Multiple sclerosis relapse [Unknown]
